FAERS Safety Report 4843300-3 (Version None)
Quarter: 2005Q4

REPORT INFORMATION
  Report Type: 
  Country: None (occurrence: None)
  Receive Date: 20051201
  Receipt Date: 20051123
  Transmission Date: 20060501
  Serious: Yes (Other)
  Sender: FDA-Public Use
  Company Number: GB-MERCK-0511GBR00140

PATIENT

DRUGS (1)
  1. ZETIA [Suspect]
     Route: 048
     Dates: start: 20051001

REACTIONS (1)
  - BLOOD TRIGLYCERIDES INCREASED [None]
